FAERS Safety Report 4967342-2 (Version None)
Quarter: 2006Q2

REPORT INFORMATION
  Report Type: 
  Country: None (occurrence: None)
  Receive Date: 20060404
  Receipt Date: 20060321
  Transmission Date: 20061013
  Serious: Yes (Hospitalization)
  Sender: FDA-Public Use
  Company Number: 2006-140071-NL

PATIENT
  Age: 59 Year
  Sex: Female

DRUGS (2)
  1. NANDROLONE DECANOATE [Suspect]
     Indication: OSTEOPOROSIS
     Dosage: SEE IMAGE
     Route: 030
     Dates: start: 19980501, end: 19990601
  2. NANDROLONE DECANOATE [Suspect]
     Indication: OSTEOPOROSIS
     Dosage: SEE IMAGE
     Route: 030
     Dates: start: 19980101

REACTIONS (13)
  - ADRENAL NEOPLASM [None]
  - AGGRESSION [None]
  - ALOPECIA [None]
  - BLOOD CHOLESTEROL INCREASED [None]
  - BLOOD GONADOTROPHIN DECREASED [None]
  - DYSPHONIA [None]
  - ENLARGED CLITORIS [None]
  - HIRSUTISM [None]
  - LIBIDO INCREASED [None]
  - OILY SKIN [None]
  - REFUSAL OF TREATMENT BY PATIENT [None]
  - UTERINE LEIOMYOMA [None]
  - VIRILISM [None]
